FAERS Safety Report 12511293 (Version 1)
Quarter: 2016Q2

REPORT INFORMATION
  Report Type: Report from Study
  Country: BR (occurrence: BR)
  Receive Date: 20160629
  Receipt Date: 20160629
  Transmission Date: 20160815
  Serious: Yes (Other)
  Sender: FDA-Public Use
  Company Number: BR-ABBVIE-16K-020-1661354-00

PATIENT
  Sex: Female

DRUGS (2)
  1. HUMIRA [Suspect]
     Active Substance: ADALIMUMAB
     Route: 058
     Dates: start: 201604
  2. HUMIRA [Suspect]
     Active Substance: ADALIMUMAB
     Indication: RHEUMATOID ARTHRITIS
     Route: 058
     Dates: start: 20150101

REACTIONS (12)
  - Eye ulcer [Recovered/Resolved]
  - Hypophagia [Unknown]
  - Urinary incontinence [Unknown]
  - Immune system disorder [Unknown]
  - Arthropathy [Recovering/Resolving]
  - Eye oedema [Recovered/Resolved]
  - Dry mouth [Unknown]
  - Eye pain [Recovered/Resolved]
  - Oesophageal pain [Unknown]
  - Tooth loss [Unknown]
  - Dry eye [Unknown]
  - Rheumatic disorder [Unknown]
